FAERS Safety Report 15806209 (Version 1)
Quarter: 2019Q1

REPORT INFORMATION
  Report Type: Spontaneous
  Country: US (occurrence: US)
  Receive Date: 20190110
  Receipt Date: 20190110
  Transmission Date: 20190417
  Serious: No
  Sender: FDA-Public Use
  Company Number: US-PFIZER INC-2019012905

PATIENT
  Age: 46 Year
  Sex: Female
  Weight: 63.49 kg

DRUGS (1)
  1. GABAPENTIN. [Suspect]
     Active Substance: GABAPENTIN
     Indication: NEURALGIA
     Dosage: GOT UP TO AT LEAST 2400 MG A DAY

REACTIONS (3)
  - Loss of personal independence in daily activities [Unknown]
  - Product use in unapproved indication [Unknown]
  - Anxiety [Unknown]
